FAERS Safety Report 21736022 (Version 1)
Quarter: 2022Q4

REPORT INFORMATION
  Report Type: Spontaneous
  Country: US (occurrence: US)
  Receive Date: 20221215
  Receipt Date: 20221215
  Transmission Date: 20230112
  Serious: Yes (Other)
  Sender: FDA-Public Use
  Company Number: US-NOVOPROD-900822

PATIENT
  Age: 81 Year
  Sex: Female

DRUGS (1)
  1. LEVEMIR [Suspect]
     Active Substance: INSULIN DETEMIR
     Indication: Diabetes mellitus
     Dosage: 6 UNITS TO 5 UNITS TO 3 UNITS
     Route: 058
     Dates: end: 202203

REACTIONS (4)
  - Diabetes mellitus inadequate control [Unknown]
  - Fall [Unknown]
  - Head injury [Unknown]
  - Drug ineffective [Unknown]
